FAERS Safety Report 10414212 (Version 1)
Quarter: 2014Q3

REPORT INFORMATION
  Report Type: Spontaneous
  Country: NL (occurrence: NL)
  Receive Date: 20140827
  Receipt Date: 20140827
  Transmission Date: 20150326
  Serious: Yes (Other)
  Sender: FDA-Public Use
  Company Number: ALCN2014NL004737

PATIENT
  Age: 23 Year
  Sex: Female

DRUGS (4)
  1. OFLOXACIN. [Suspect]
     Active Substance: OFLOXACIN
     Indication: POSTOPERATIVE CARE
     Dosage: 1 DF, QID
     Route: 047
  2. KETOROLAC [Suspect]
     Active Substance: KETOROLAC\KETOROLAC TROMETHAMINE
     Indication: POSTOPERATIVE CARE
     Dosage: 1 DF, QID
     Route: 047
  3. FLUOROMETHOLONE. [Suspect]
     Active Substance: FLUOROMETHOLONE
     Indication: POSTOPERATIVE CARE
     Dosage: 1 DF, TID
     Route: 047
  4. FLUOROMETHOLONE. [Suspect]
     Active Substance: FLUOROMETHOLONE
     Dosage: 1 DF, BID
     Route: 047

REACTIONS (4)
  - Corneal scar [Unknown]
  - Impaired healing [Recovered/Resolved]
  - Vision blurred [Unknown]
  - Photophobia [Unknown]
